FAERS Safety Report 6573697-8 (Version None)
Quarter: 2010Q1

REPORT INFORMATION
  Report Type: 
  Country: None (occurrence: None)
  Receive Date: 20100208
  Receipt Date: 20100202
  Transmission Date: 20100710
  Serious: Yes (Hospitalization)
  Sender: FDA-Public Use
  Company Number: A0784420A

PATIENT
  Age: 61 Year
  Sex: Female
  Weight: 72.7 kg

DRUGS (13)
  1. IMITREX [Suspect]
     Indication: MIGRAINE
     Dosage: 50MG AS REQUIRED
     Route: 065
     Dates: start: 20060519, end: 20080201
  2. ADVAIR DISKUS 100/50 [Concomitant]
  3. AMITRIPTYLINE HCL [Concomitant]
  4. ASPIRIN [Concomitant]
  5. CALCIUM [Concomitant]
  6. DARVOCET [Concomitant]
  7. FOLIC ACID [Concomitant]
  8. LORCET-HD [Concomitant]
  9. MOBIC [Concomitant]
  10. MULTI-VITAMIN [Concomitant]
  11. PRILOSEC [Concomitant]
  12. SINGULAIR [Concomitant]
  13. TOPAMAX [Concomitant]

REACTIONS (3)
  - CORONARY ARTERY DISEASE [None]
  - MYOCARDIAL INFARCTION [None]
  - STRESS CARDIOMYOPATHY [None]
